FAERS Safety Report 8615662-2 (Version None)
Quarter: 2012Q3

REPORT INFORMATION
  Report Type: 
  Country: None (occurrence: None)
  Receive Date: 20120823
  Receipt Date: 20120814
  Transmission Date: 20120928
  Serious: Yes (Hospitalization)
  Sender: FDA-Public Use
  Company Number: JP-009507513-1207JPN000015

PATIENT

DRUGS (11)
  1. GLIMICRON [Concomitant]
     Dosage: DAILY DOSAGE UNKNOWN
     Route: 048
  2. ABILIFY [Concomitant]
     Dosage: DAILY DOSAGE UNKNOWN
     Route: 048
  3. CLONAZEPAM [Concomitant]
     Dosage: DAILY DOSAGE UNKNOWN
     Route: 048
  4. TASMOLIN (BIPERIDEN) [Concomitant]
     Dosage: DAILY DOSAGE UNKNOWN
     Route: 048
  5. CYMBALTA [Concomitant]
     Dosage: DAILY DOSAGE UNKNOWN
     Route: 048
  6. DESYREL [Concomitant]
     Dosage: DAILY DOSAGE UNKNOWN
     Route: 048
  7. LORAZEPAM [Concomitant]
     Dosage: DAILY DOSAGE UNKNOWN
     Route: 048
  8. JANUVIA [Suspect]
     Dosage: 50 MG, QD
     Route: 048
     Dates: start: 20110202, end: 20110215
  9. LIVALO [Concomitant]
     Dosage: DAILY DOSAGE UNKNOWN
     Route: 048
  10. JANUVIA [Suspect]
     Indication: TYPE 2 DIABETES MELLITUS
     Dosage: 100 MG, QD
     Route: 048
     Dates: start: 20110216
  11. METFORMIN HCL [Concomitant]
     Dosage: DAILY DOSAGE UNKNOWN
     Route: 048

REACTIONS (1)
  - MICROCYTIC ANAEMIA [None]
